FAERS Safety Report 6805936-X (Version None)
Quarter: 2010Q2

REPORT INFORMATION
  Report Type: 
  Country: None (occurrence: None)
  Receive Date: 20100629
  Receipt Date: 20071211
  Transmission Date: 20101027
  Serious: No
  Sender: FDA-Public Use
  Company Number: US-PFIZER INC-2007074624

PATIENT
  Sex: Male
  Weight: 77.11 kg

DRUGS (6)
  1. TIKOSYN [Suspect]
     Indication: ATRIAL FIBRILLATION
     Route: 048
     Dates: start: 20070828
  2. TIKOSYN [Suspect]
  3. FLOMAX [Concomitant]
  4. DILTIAZEM [Concomitant]
  5. PROSCAR [Concomitant]
  6. COUMADIN [Concomitant]

REACTIONS (4)
  - DRUG INEFFECTIVE [None]
  - JOINT SWELLING [None]
  - PLATELET COUNT DECREASED [None]
  - WHITE BLOOD CELL COUNT DECREASED [None]
